FAERS Safety Report 4963615-8 (Version None)
Quarter: 2006Q1

REPORT INFORMATION
  Report Type: 
  Country: None (occurrence: None)
  Receive Date: 20060330
  Receipt Date: 20060317
  Transmission Date: 20060701
  Serious: Yes (Other)
  Sender: FDA-Public Use
  Company Number: 2006037913

PATIENT
  Age: 29 Year
  Sex: Female

DRUGS (3)
  1. ZYVOX [Suspect]
     Indication: STAPHYLOCOCCAL SEPSIS
     Dosage: SEE IMAGE
     Route: 042
     Dates: start: 20060217
  2. ZYVOX [Suspect]
     Indication: STAPHYLOCOCCAL SEPSIS
     Dosage: SEE IMAGE
     Route: 042
     Dates: start: 20060316
  3. ZYVOX [Suspect]
     Indication: STAPHYLOCOCCAL SEPSIS
     Dosage: 1200 MG, ORAL
     Route: 048
     Dates: start: 20060222, end: 20060315

REACTIONS (2)
  - DRUG INEFFECTIVE [None]
  - ILEUS PARALYTIC [None]
